FAERS Safety Report 13403672 (Version 1)
Quarter: 2017Q2

REPORT INFORMATION
  Report Type: Report from Study
  Country: CA (occurrence: CA)
  Receive Date: 20170405
  Receipt Date: 20170405
  Transmission Date: 20170830
  Serious: Yes (Other)
  Sender: FDA-Public Use
  Company Number: PHHY2017CA049152

PATIENT
  Sex: Female

DRUGS (3)
  1. ZOMETA [Suspect]
     Active Substance: ZOLEDRONIC ACID
     Dosage: 4 MG, EVERY 6 MONTHS
     Route: 065
     Dates: start: 20101213, end: 20120313
  2. ZOMETA [Suspect]
     Active Substance: ZOLEDRONIC ACID
     Dosage: 4 MG, ONCE A YEAR
     Route: 065
     Dates: start: 20130514
  3. ZOMETA [Suspect]
     Active Substance: ZOLEDRONIC ACID
     Indication: BREAST CANCER
     Dosage: 4 MG, ONE DOSE ONLY
     Route: 065
     Dates: start: 20100315, end: 20100315

REACTIONS (2)
  - Femur fracture [Unknown]
  - Inappropriate schedule of drug administration [Unknown]
